FAERS Safety Report 23194045 (Version 1)
Quarter: 2023Q4

REPORT INFORMATION
  Report Type: Spontaneous
  Country: BE (occurrence: BE)
  Receive Date: 20231117
  Receipt Date: 20231117
  Transmission Date: 20240109
  Serious: Yes (Death, Hospitalization)
  Sender: FDA-Public Use
  Company Number: BE-PFIZER INC-PV202300186810

PATIENT
  Age: 59 Year
  Sex: Male

DRUGS (2)
  1. AVIBACTAM SODIUM [Suspect]
     Active Substance: AVIBACTAM SODIUM
     Indication: Product used for unknown indication
     Dosage: 5.0 G, 2X/DAY
     Route: 065
  2. AZTREONAM [Suspect]
     Active Substance: AZTREONAM
     Indication: Product used for unknown indication
     Dosage: TIME INTERVAL: 0.33333333 DAYS: 2 G, 3X/DAY
     Route: 065

REACTIONS (3)
  - Systemic candida [Fatal]
  - Off label use [Unknown]
  - Product use issue [Unknown]
